FAERS Safety Report 25770226 (Version 1)
Quarter: 2025Q3

REPORT INFORMATION
  Report Type: Spontaneous
  Country: IN (occurrence: IN)
  Receive Date: 20250907
  Receipt Date: 20250907
  Transmission Date: 20251021
  Serious: Yes (Hospitalization, Other)
  Sender: HETERO
  Company Number: IN-HETERO-HET2025IN05191

PATIENT
  Age: 68 Year
  Sex: Male

DRUGS (5)
  1. TICAGRELOR [Suspect]
     Active Substance: TICAGRELOR
     Indication: Product used for unknown indication
     Route: 065
  2. ATORVASTATIN [Concomitant]
     Active Substance: ATORVASTATIN
     Indication: Product used for unknown indication
     Route: 048
  3. FONDAPARINUX [Concomitant]
     Active Substance: FONDAPARINUX
     Indication: Myocardial ischaemia
     Route: 058
  4. ASPIRIN [Concomitant]
     Active Substance: ASPIRIN
     Indication: Product used for unknown indication
     Route: 065
  5. ACETAMINOPHEN [Concomitant]
     Active Substance: ACETAMINOPHEN
     Indication: Pyrexia
     Route: 048

REACTIONS (1)
  - Thrombocytopenia [Recovered/Resolved]
